FAERS Safety Report 7407518-8 (Version None)
Quarter: 2011Q2

REPORT INFORMATION
  Report Type: 
  Country: None (occurrence: None)
  Receive Date: 20110412
  Receipt Date: 20110401
  Transmission Date: 20111010
  Serious: Yes (Other)
  Sender: FDA-Public Use
  Company Number: US-BIOGENIDEC-2011BI012508

PATIENT
  Age: 39 Year
  Sex: Female

DRUGS (1)
  1. TYSABRI [Suspect]
     Indication: MULTIPLE SCLEROSIS
     Route: 042
     Dates: start: 20080901

REACTIONS (8)
  - CONVULSION [None]
  - RESPIRATORY TRACT INFECTION [None]
  - FATIGUE [None]
  - DIZZINESS [None]
  - VISION BLURRED [None]
  - DYSSTASIA [None]
  - URINARY TRACT INFECTION [None]
  - FALL [None]
